FAERS Safety Report 6182323-1 (Version None)
Quarter: 2009Q2

REPORT INFORMATION
  Report Type: 
  Country: None (occurrence: None)
  Receive Date: 20090505
  Receipt Date: 20090424
  Transmission Date: 20091009
  Serious: Yes (Other)
  Sender: FDA-Public Use
  Company Number: 2009AP001560

PATIENT
  Age: 22 Year
  Sex: Male

DRUGS (4)
  1. PAROXETINE HCL [Suspect]
     Indication: ANXIETY
     Dosage: 20 MG; QD PO, 10 MG; TAB; PO; QD, 20 MG; TAB; PO; QD
     Route: 048
  2. LORAZEPAM [Concomitant]
  3. VENLAFAXINE HCL [Concomitant]
  4. LORAZEPAM [Concomitant]

REACTIONS (6)
  - BLOOD PRESSURE INCREASED [None]
  - FEELING HOT [None]
  - MIDDLE INSOMNIA [None]
  - PALPITATIONS [None]
  - PYREXIA [None]
  - TACHYCARDIA [None]
